FAERS Safety Report 6382210-X (Version None)
Quarter: 2009Q3

REPORT INFORMATION
  Report Type: 
  Country: None (occurrence: None)
  Receive Date: 20090930
  Receipt Date: 20090917
  Transmission Date: 20100115
  Serious: Yes (Hospitalization)
  Sender: FDA-Public Use
  Company Number: GB-BAYER-200933456GPV

PATIENT
  Sex: Female

DRUGS (1)
  1. ALKA SELTZER ORIGINAL [Suspect]
     Indication: MIGRAINE

REACTIONS (1)
  - HOSPITALISATION [None]
